FAERS Safety Report 11230675 (Version 4)
Quarter: 2015Q3

REPORT INFORMATION
  Report Type: Report from Study
  Country: US (occurrence: None)
  Receive Date: 20150629
  Receipt Date: 20150720
  Transmission Date: 20151125
  Serious: Yes (Death, Hospitalization, Disabling, Other)
  Sender: FDA-Public Use
  Company Number: KAD201505-001108

PATIENT
  Age: 65 Year
  Sex: Male
  Weight: 58 kg

DRUGS (26)
  1. RIBASPHERE [Suspect]
     Active Substance: RIBAVIRIN
     Indication: HEPATITIS C
     Dosage: 600 MG TAB AM AND 400 MG TAB PM, DOSE PACKET THAT CONTAINED BOTH DOSES
     Route: 048
     Dates: start: 20150328, end: 20150506
  2. CREON [Concomitant]
     Active Substance: PANCRELIPASE AMYLASE\PANCRELIPASE LIPASE\PANCRELIPASE PROTEASE
  3. LEVOBUNOLOL OPTHT (LEVOBUNOLOL HYDROCHLORIDE) [Concomitant]
  4. PRILOSEC (OMEPRAZOLE) [Concomitant]
     Active Substance: OMEPRAZOLE MAGNESIUM
  5. OXYCODONE/ACETAMINOPHEN (PERCOCET)) [Concomitant]
  6. ALDACTONE [Concomitant]
     Active Substance: SPIRONOLACTONE
  7. BENTYL (DICYCLOVERINE HYDROCHLORIDE, DICYCLOMINE) [Concomitant]
  8. XIFAXAN [Concomitant]
     Active Substance: RIFAXIMIN
  9. DICYCLOMINE [Concomitant]
     Active Substance: DICYCLOMINE HYDROCHLORIDE
  10. METOCLOPRAMIDE (METOCLOPRAMIDE) [Concomitant]
     Active Substance: METOCLOPRAMIDE
  11. MEGACE [Concomitant]
     Active Substance: MEGESTROL ACETATE
  12. MACROGOL (POLYETHYLENE GLYCOL) [Concomitant]
  13. OXYCODONE IMMEDIATE RELEASE (OXYCODONE) [Concomitant]
  14. XANAX [Concomitant]
     Active Substance: ALPRAZOLAM
  15. CIPRO [Concomitant]
     Active Substance: CIPROFLOXACIN HYDROCHLORIDE
  16. ZOFRAN (ONDANSETRON) [Concomitant]
  17. K-TAB (POTASSIUM CHLORIDE) [Concomitant]
  18. REGLAN [Concomitant]
     Active Substance: METOCLOPRAMIDE HYDROCHLORIDE
  19. XIFAXAN [Concomitant]
     Active Substance: RIFAXIMIN
  20. PANCREATIC ENZYMES (CREON) [Concomitant]
  21. LASIX [Concomitant]
     Active Substance: FUROSEMIDE
  22. VIEKIRA PAK [Suspect]
     Active Substance: DASABUVIR\OMBITASVIR\PARITAPREVIR\RITONAVIR
     Indication: HEPATITIS C
     Dosage: 3 PILLS IN AM AND 1 PILL IN PM
     Route: 048
     Dates: start: 20150328, end: 20150612
  23. OMEPRAZOLE  (OMEPRAZOLE) [Concomitant]
     Active Substance: OMEPRAZOLE
  24. FUROSEMIDE (FUROSEMIDE) [Concomitant]
     Active Substance: FUROSEMIDE
  25. CILOXAN (CIPROFLOXACIN HYDROCHLORIDE) [Concomitant]
  26. ONDANSETRON. [Concomitant]
     Active Substance: ONDANSETRON

REACTIONS (20)
  - Refusal of treatment by patient [None]
  - Weight decreased [None]
  - Hepatic failure [None]
  - Hypophagia [None]
  - Decreased appetite [None]
  - Agitation [None]
  - Hypersomnia [None]
  - Amnesia [None]
  - Anaemia [None]
  - Pancreatitis [None]
  - Jaundice [None]
  - Confusional state [None]
  - Chromaturia [None]
  - Asterixis [None]
  - Fatigue [None]
  - Dysphagia [None]
  - Hepatic encephalopathy [None]
  - Asthenia [None]
  - Hepatic cirrhosis [None]
  - Diarrhoea [None]

NARRATIVE: CASE EVENT DATE: 201506
